FAERS Safety Report 14843498 (Version 3)
Quarter: 2018Q3

REPORT INFORMATION
  Report Type: Report from Study
  Country: US (occurrence: US)
  Receive Date: 20180503
  Receipt Date: 20180801
  Transmission Date: 20181010
  Serious: Yes (Hospitalization)
  Sender: FDA-Public Use
  Company Number: US-SA-2017SA217514

PATIENT
  Age: 46 Year
  Sex: Female

DRUGS (1)
  1. ALEMTUZUMAB [Suspect]
     Active Substance: ALEMTUZUMAB
     Indication: RELAPSING MULTIPLE SCLEROSIS
     Dosage: 12 MG,QD
     Route: 041
     Dates: start: 20171016, end: 20171020

REACTIONS (4)
  - Arthralgia [Recovered/Resolved]
  - Neck pain [Recovered/Resolved]
  - Rash pruritic [Recovered/Resolved]
  - Nocardiosis [Recovering/Resolving]

NARRATIVE: CASE EVENT DATE: 201710
